FAERS Safety Report 13256166 (Version 4)
Quarter: 2017Q1

REPORT INFORMATION
  Report Type: Report from Study
  Country: US (occurrence: US)
  Receive Date: 20170221
  Receipt Date: 20170315
  Transmission Date: 20170428
  Serious: Yes (Death, Hospitalization, Other)
  Sender: FDA-Public Use
  Company Number: US-009507513-1701USA010818

PATIENT
  Age: 79 Year
  Sex: Female

DRUGS (3)
  1. PEMBROLIZUMAB. [Suspect]
     Active Substance: PEMBROLIZUMAB
     Indication: LUNG NEOPLASM MALIGNANT
     Dosage: UNK
     Route: 042
     Dates: start: 20161223, end: 20161223
  2. MORPHINE [Concomitant]
     Active Substance: MORPHINE
     Dosage: 50 MG TWICE DAILY
  3. PEMBROLIZUMAB. [Suspect]
     Active Substance: PEMBROLIZUMAB
     Dosage: UNK
     Route: 042
     Dates: start: 20170116, end: 20170116

REACTIONS (6)
  - Nausea [Not Recovered/Not Resolved]
  - Hyponatraemia [Unknown]
  - Malignant neoplasm progression [Unknown]
  - Blood sodium decreased [Unknown]
  - Death [Fatal]
  - Constipation [Recovered/Resolved]

NARRATIVE: CASE EVENT DATE: 201612
